FAERS Safety Report 5378095-0 (Version None)
Quarter: 2007Q3

REPORT INFORMATION
  Report Type: 
  Country: None (occurrence: None)
  Receive Date: 20070702
  Receipt Date: 20070702
  Transmission Date: 20080115
  Serious: Yes (Life-Threatening, Hospitalization)
  Sender: FDA-Public Use
  Company Number: None

PATIENT
  Age: 72 Year
  Sex: Female
  Weight: 79 kg

DRUGS (16)
  1. PHENERGAN HCL [Suspect]
     Indication: NAUSEA
     Dosage: 12.5MG IV SLOW PUSH X1
     Route: 042
  2. PHENERGAN HCL [Suspect]
     Indication: VOMITING
     Dosage: 12.5MG IV SLOW PUSH X1
     Route: 042
  3. ENALAPRIL [Concomitant]
  4. ARICEPT [Concomitant]
  5. ASPIRIN [Concomitant]
  6. VIT B COMPLEX [Concomitant]
  7. PLAVIX [Concomitant]
  8. METFORMIN [Concomitant]
  9. TRAMADOL HCL [Concomitant]
  10. BACTRIM [Concomitant]
  11. GUAIFENESIN [Concomitant]
  12. LANTUS [Concomitant]
  13. ACTOS [Concomitant]
  14. PROTONIX [Concomitant]
  15. XALATAN [Concomitant]
  16. NOVOLOG [Concomitant]

REACTIONS (9)
  - ASTHENIA [None]
  - BODY TEMPERATURE INCREASED [None]
  - COUGH [None]
  - DEHYDRATION [None]
  - DEPRESSED LEVEL OF CONSCIOUSNESS [None]
  - EXTRAPYRAMIDAL DISORDER [None]
  - LETHARGY [None]
  - PAIN [None]
  - RESTLESSNESS [None]
